FAERS Safety Report 15263003 (Version 1)
Quarter: 2020Q3

REPORT INFORMATION
  Report Type: Spontaneous
  Country: ES (occurrence: ES)
  Receive Date: 20180810
  Receipt Date: 20180810
  Transmission Date: 20201104
  Serious: Yes (Hospitalization, Other)
  Sender: FDA-Public Use
  Company Number: ES-ROCHE-2165308

PATIENT
  Sex: Male

DRUGS (5)
  1. KEPPRA [Concomitant]
     Active Substance: LEVETIRACETAM
     Route: 065
  2. ALECTINIB. [Suspect]
     Active Substance: ALECTINIB
     Route: 065
     Dates: start: 20180727
  3. ALECTINIB. [Suspect]
     Active Substance: ALECTINIB
     Route: 065
  4. ALECTINIB. [Suspect]
     Active Substance: ALECTINIB
     Indication: LUNG NEOPLASM MALIGNANT
     Route: 065
     Dates: start: 20180605
  5. ENTECAVIR. [Concomitant]
     Active Substance: ENTECAVIR
     Indication: HEPATITIS B
     Route: 065

REACTIONS (4)
  - Seizure [Unknown]
  - Status epilepticus [Unknown]
  - Intracranial pressure increased [Unknown]
  - Oedema peripheral [Unknown]

NARRATIVE: CASE EVENT DATE: 20180716
